FAERS Safety Report 10071729 (Version 4)
Quarter: 2015Q1

REPORT INFORMATION
  Report Type: Spontaneous
  Country: JP (occurrence: JP)
  Receive Date: 20140411
  Receipt Date: 20150115
  Transmission Date: 20150720
  Serious: Yes (Life-Threatening, Other)
  Sender: FDA-Public Use
  Company Number: JP-ROCHE-1376236

PATIENT
  Age: 49 Year
  Sex: Female
  Weight: 38 kg

DRUGS (10)
  1. AVASTIN [Suspect]
     Active Substance: BEVACIZUMAB
     Indication: OVARIAN CANCER METASTATIC
     Route: 041
     Dates: start: 20140325, end: 20140325
  2. PACLITAXEL. [Suspect]
     Active Substance: PACLITAXEL
     Indication: OVARIAN CANCER METASTATIC
     Dosage: DOSAGE  UNCERTAIN
     Route: 041
     Dates: start: 20131220, end: 20131220
  3. PACLITAXEL. [Suspect]
     Active Substance: PACLITAXEL
     Indication: OVARIAN CANCER METASTATIC
     Dosage: DOSAGE  UNCERTAIN
     Route: 041
     Dates: start: 20140124, end: 20140124
  4. CARBOPLATIN. [Suspect]
     Active Substance: CARBOPLATIN
     Indication: OVARIAN CANCER METASTATIC
     Dosage: DOSAGE IS UNCERTAIN
     Route: 041
     Dates: start: 20140124, end: 20140124
  5. CARBOPLATIN. [Suspect]
     Active Substance: CARBOPLATIN
     Indication: OVARIAN CANCER METASTATIC
     Dosage: DOSAGE IS UNCERTAIN
     Route: 041
     Dates: start: 20140225, end: 20140225
  6. PACLITAXEL. [Suspect]
     Active Substance: PACLITAXEL
     Indication: OVARIAN CANCER METASTATIC
     Dosage: DOSAGE IS UNCERTAIN
     Route: 041
     Dates: start: 20140225, end: 20140225
  7. NASEA [Concomitant]
     Active Substance: RAMOSETRON HYDROCHLORIDE
     Indication: PROPHYLAXIS
     Route: 041
     Dates: start: 20140325, end: 20140325
  8. PACLITAXEL. [Suspect]
     Active Substance: PACLITAXEL
     Indication: OVARIAN CANCER METASTATIC
     Dosage: DOSAGE  UNCERTAIN
     Route: 041
     Dates: start: 20140325, end: 20140325
  9. CARBOPLATIN. [Suspect]
     Active Substance: CARBOPLATIN
     Indication: OVARIAN CANCER METASTATIC
     Dosage: DOSAGE  UNCERTAIN
     Route: 041
     Dates: start: 20131220, end: 20131220
  10. CARBOPLATIN. [Suspect]
     Active Substance: CARBOPLATIN
     Indication: OVARIAN CANCER METASTATIC
     Dosage: DOSAGE IS UNCERTAIN
     Route: 041
     Dates: start: 20140325, end: 20140325

REACTIONS (4)
  - Loss of consciousness [Recovering/Resolving]
  - Seizure [Recovering/Resolving]
  - Epilepsy [Recovered/Resolved]
  - Febrile neutropenia [Recovered/Resolved]

NARRATIVE: CASE EVENT DATE: 20140328
